FAERS Safety Report 17598741 (Version 1)
Quarter: 2020Q1

REPORT INFORMATION
  Report Type: Spontaneous
  Country: US (occurrence: US)
  Receive Date: 20200330
  Receipt Date: 20200330
  Transmission Date: 20200409
  Serious: Yes (Hospitalization)
  Sender: FDA-Public Use
  Company Number: US-ASTRAZENECA-2020SE43620

PATIENT
  Sex: Male

DRUGS (4)
  1. SYNAGIS [Suspect]
     Active Substance: PALIVIZUMAB
     Indication: RESPIRATORY SYNCYTIAL VIRUS INFECTION
     Route: 030
     Dates: start: 201912
  2. MULTIVITAMINS [Concomitant]
     Active Substance: VITAMINS
  3. LASIX [Concomitant]
     Active Substance: FUROSEMIDE
  4. DIGOX [Concomitant]
     Active Substance: DIGOXIN

REACTIONS (2)
  - Complication associated with device [Unknown]
  - Vomiting [Unknown]
